FAERS Safety Report 15764963 (Version 1)
Quarter: 2018Q4

REPORT INFORMATION
  Report Type: Report from Study
  Country: US (occurrence: US)
  Receive Date: 20181227
  Receipt Date: 20181227
  Transmission Date: 20190205
  Serious: Yes (Hospitalization, Other)
  Sender: FDA-Public Use
  Company Number: US-SA-2016SA151458

PATIENT
  Age: 50 Year
  Sex: Female

DRUGS (2)
  1. ALEMTUZUMAB [Suspect]
     Active Substance: ALEMTUZUMAB
     Indication: MULTIPLE SCLEROSIS
     Dosage: 12 MG,QD
     Route: 041
     Dates: start: 20160509, end: 20160513
  2. LEVAQUIN [Concomitant]
     Active Substance: LEVOFLOXACIN

REACTIONS (14)
  - Sepsis [Unknown]
  - Malnutrition [Unknown]
  - Hypertension [Unknown]
  - Blood albumin decreased [Unknown]
  - C-reactive protein increased [Unknown]
  - Dysuria [Unknown]
  - Oedema peripheral [Unknown]
  - Sputum discoloured [Unknown]
  - Immunosuppression [Unknown]
  - Pneumonia [Not Recovered/Not Resolved]
  - Peripheral venous disease [Unknown]
  - Urinary tract infection [Unknown]
  - Vitamin D deficiency [Unknown]
  - Urine abnormality [Unknown]

NARRATIVE: CASE EVENT DATE: 20160615
